FAERS Safety Report 9474729 (Version 1)
Quarter: 2013Q3

REPORT INFORMATION
  Report Type: Report from Study
  Country: US (occurrence: US)
  Receive Date: 20130823
  Receipt Date: 20130823
  Transmission Date: 20140515
  Serious: Yes (Other)
  Sender: FDA-Public Use
  Company Number: US-US-EMD SERONO, INC.-7231984

PATIENT
  Sex: Male
  Weight: 99 kg

DRUGS (8)
  1. SEROSTIM [(SOMATROPIN (RDNA ORIGIN) FOR INJECTION)] [Suspect]
     Indication: CACHEXIA
     Route: 058
  2. SEROSTIM [(SOMATROPIN (RDNA ORIGIN) FOR INJECTION)] [Suspect]
     Indication: HIV WASTING SYNDROME
  3. XANAX XR [Concomitant]
     Indication: PRODUCT USED FOR UNKNOWN INDICATION
  4. CIPRODEX                           /01633401/ [Concomitant]
     Indication: PRODUCT USED FOR UNKNOWN INDICATION
     Route: 001
  5. BACTROBAN                          /00753901/ [Concomitant]
     Indication: PRODUCT USED FOR UNKNOWN INDICATION
     Route: 061
  6. TRETINOIN [Concomitant]
     Indication: PRODUCT USED FOR UNKNOWN INDICATION
     Route: 061
  7. ZOLPIDEM [Concomitant]
     Indication: PRODUCT USED FOR UNKNOWN INDICATION
     Route: 048
  8. TESTIM [Concomitant]
     Indication: PRODUCT USED FOR UNKNOWN INDICATION

REACTIONS (5)
  - Staphylococcal infection [Unknown]
  - Eye swelling [Not Recovered/Not Resolved]
  - Eye oedema [Not Recovered/Not Resolved]
  - Blood urine present [Unknown]
  - Skin papilloma [Unknown]
